FAERS Safety Report 5747061-5 (Version None)
Quarter: 2008Q2

REPORT INFORMATION
  Report Type: 
  Country: None (occurrence: None)
  Receive Date: 20080522
  Receipt Date: 20080521
  Transmission Date: 20081010
  Serious: Yes (Hospitalization)
  Sender: FDA-Public Use
  Company Number: BR-BOEHRINGER INGELHEIM GMBH, GERMANY-2008-BP-07601BR

PATIENT
  Age: 85 Year
  Sex: Male

DRUGS (12)
  1. SPIRIVA [Suspect]
     Indication: EMPHYSEMA
     Route: 055
     Dates: start: 20080415
  2. SERETIDE [Concomitant]
     Route: 055
  3. PANTOPRAZOL [Concomitant]
     Indication: ULCER HAEMORRHAGE
     Route: 048
  4. FLUOXETINA [Concomitant]
  5. PENTOXIFILINA [Concomitant]
  6. AAS [Concomitant]
  7. ALOPURINOL [Concomitant]
  8. PREDNISOLONA [Concomitant]
  9. SULFATO FERROSO [Concomitant]
  10. CLORETO DE SODIO 9% [Concomitant]
     Route: 055
  11. FENOTEROL [Concomitant]
  12. IPRATROPIO [Concomitant]

REACTIONS (2)
  - PRURITUS [None]
  - RASH MACULO-PAPULAR [None]
